FAERS Safety Report 14911951 (Version 1)
Quarter: 2018Q2

REPORT INFORMATION
  Report Type: Spontaneous
  Country: FR (occurrence: FR)
  Receive Date: 20180518
  Receipt Date: 20180518
  Transmission Date: 20180711
  Serious: Yes (Other)
  Sender: FDA-Public Use
  Company Number: FR-MERCK KGAA-2048043

PATIENT
  Age: 49 Year
  Sex: Female

DRUGS (1)
  1. NOVOTHYROX [Suspect]
     Active Substance: LEVOTHYROXINE SODIUM
     Indication: PRODUCT USED FOR UNKNOWN INDICATION
     Dates: start: 201705, end: 2017

REACTIONS (22)
  - Dizziness [None]
  - Blood potassium increased [None]
  - Diarrhoea [Recovered/Resolved]
  - Musculoskeletal stiffness [None]
  - Pain in extremity [None]
  - Anger [None]
  - Pain [Recovering/Resolving]
  - Stress at work [None]
  - Aggression [None]
  - Anxiety [Recovering/Resolving]
  - Partner stress [None]
  - Nausea [Recovered/Resolved]
  - Diabetes mellitus inadequate control [None]
  - Impatience [None]
  - Irritability [None]
  - Fatigue [Not Recovered/Not Resolved]
  - Morose [None]
  - Paraesthesia [None]
  - Myalgia [Recovering/Resolving]
  - Gait disturbance [None]
  - Sleep disorder [None]
  - Crying [None]

NARRATIVE: CASE EVENT DATE: 2017
